FAERS Safety Report 25395979 (Version 1)
Quarter: 2025Q2

REPORT INFORMATION
  Report Type: Report from Study
  Country: US (occurrence: US)
  Receive Date: 20250604
  Receipt Date: 20250604
  Transmission Date: 20250716
  Serious: Yes (Other)
  Sender: ABBVIE
  Company Number: US-ABBVIE-6309031

PATIENT
  Sex: Female

DRUGS (1)
  1. SKYRIZI [Suspect]
     Active Substance: RISANKIZUMAB-RZAA
     Indication: Psoriasis
     Route: 058
     Dates: start: 20240105

REACTIONS (4)
  - Neoplasm malignant [Recovered/Resolved]
  - Psoriasis [Recovering/Resolving]
  - Bone neoplasm [Recovering/Resolving]
  - Peripheral nervous system neoplasm [Recovered/Resolved]
